FAERS Safety Report 8935096 (Version 1)
Quarter: 2012Q4

REPORT INFORMATION
  Report Type: 
  Country: SE (occurrence: SE)
  Receive Date: 20121129
  Receipt Date: 20121129
  Transmission Date: 20130627
  Serious: Yes (Hospitalization)
  Sender: FDA-Public Use
  Company Number: SE-TEVA-371797ISR

PATIENT
  Sex: Male

DRUGS (4)
  1. CICLOSPORIN [Suspect]
     Dates: start: 201201, end: 20120903
  2. ENANTONE [Suspect]
     Dates: start: 1995
  3. CELLCEPT [Suspect]
     Dates: end: 201201
  4. ALLOPURINOL [Suspect]
     Dates: end: 20120801

REACTIONS (2)
  - Eosinophilia [Unknown]
  - Blood creatinine increased [Unknown]
